FAERS Safety Report 7985971-9 (Version None)
Quarter: 2011Q4

REPORT INFORMATION
  Report Type: 
  Country: None (occurrence: None)
  Receive Date: 20111216
  Receipt Date: 20111213
  Transmission Date: 20120403
  Serious: Yes (Disabling)
  Sender: FDA-Public Use
  Company Number: US-MERCK-1106USA02218

PATIENT
  Age: 76 Year
  Sex: Female

DRUGS (1)
  1. FOSAMAX [Suspect]
     Indication: BONE DENSITY DECREASED
     Route: 048
     Dates: start: 20020312, end: 20071010

REACTIONS (4)
  - BONE DISORDER [None]
  - OSTEONECROSIS OF JAW [None]
  - OSTEOMYELITIS [None]
  - BLOOD CHOLESTEROL INCREASED [None]
